FAERS Safety Report 9478473 (Version 1)
Quarter: 2013Q3

REPORT INFORMATION
  Report Type: Spontaneous
  Country: US (occurrence: None)
  Receive Date: 20130822
  Receipt Date: 20130822
  Transmission Date: 20140515
  Serious: Yes (Death)
  Sender: FDA-Public Use
  Company Number: 2013US00559

PATIENT
  Sex: 0

DRUGS (2)
  1. GEMCITABINE [Suspect]
     Route: 042
  2. DASATINIB [Suspect]

REACTIONS (1)
  - Thrombotic thrombocytopenic purpura [None]
